FAERS Safety Report 23098022 (Version 2)
Quarter: 2024Q1

REPORT INFORMATION
  Report Type: Spontaneous
  Country: FR (occurrence: FR)
  Receive Date: 20231023
  Receipt Date: 20240228
  Transmission Date: 20240409
  Serious: Yes (Death, Hospitalization, Other)
  Sender: FDA-Public Use
  Company Number: FR-002147023-NVSC2023FR226379

PATIENT
  Age: 54 Year
  Sex: Male
  Weight: 115 kg

DRUGS (9)
  1. CYCLOSPORINE [Suspect]
     Active Substance: CYCLOSPORINE
     Indication: Product used for unknown indication
     Dosage: UNK
     Route: 065
     Dates: end: 20200630
  2. RYDAPT [Suspect]
     Active Substance: MIDOSTAURIN
     Indication: Immunomodulatory therapy
     Dosage: UNK
     Route: 065
     Dates: start: 20200106
  3. RYDAPT [Suspect]
     Active Substance: MIDOSTAURIN
     Dosage: UNK
     Route: 065
     Dates: start: 20200729
  4. VALACYCLOVIR HYDROCHLORIDE [Concomitant]
     Active Substance: VALACYCLOVIR HYDROCHLORIDE
     Indication: Product used for unknown indication
     Dosage: UNK, BID
     Route: 048
  5. PENICILLIN V [Concomitant]
     Active Substance: PENICILLIN V
     Indication: Product used for unknown indication
     Dosage: 1MIU, BID
     Route: 065
  6. ESOMEPRAZOLE [Concomitant]
     Active Substance: ESOMEPRAZOLE
     Indication: Product used for unknown indication
     Dosage: 40 MG, QD
     Route: 048
  7. BACTRIM [Concomitant]
     Active Substance: SULFAMETHOXAZOLE\TRIMETHOPRIM
     Indication: Product used for unknown indication
     Dosage: UNK, TIW, (MONDAY ? WEDNESDAY - FRIDAY)
     Route: 048
  8. HYDREA [Concomitant]
     Active Substance: HYDROXYUREA
     Indication: Product used for unknown indication
     Dosage: UNK, BID
     Route: 065
  9. FUROSEMIDE [Concomitant]
     Active Substance: FUROSEMIDE
     Indication: Product used for unknown indication
     Dosage: UNK
     Route: 042

REACTIONS (17)
  - Myeloid leukaemia [Fatal]
  - Febrile bone marrow aplasia [Fatal]
  - Acute graft versus host disease in intestine [Fatal]
  - Diarrhoea [Fatal]
  - Rectal discharge [Fatal]
  - Jaundice [Fatal]
  - Malaise [Unknown]
  - Sepsis [Unknown]
  - Pyrexia [Unknown]
  - Hepatosplenomegaly [Unknown]
  - Campylobacter gastroenteritis [Unknown]
  - Oedema [Unknown]
  - Graft versus host disease in skin [Unknown]
  - Pleural effusion [Unknown]
  - Crepitations [Unknown]
  - Cough [Unknown]
  - Generalised tonic-clonic seizure [Unknown]

NARRATIVE: CASE EVENT DATE: 20200921
